FAERS Safety Report 15382041 (Version 1)
Quarter: 2018Q3

REPORT INFORMATION
  Report Type: Spontaneous
  Country: US (occurrence: US)
  Receive Date: 20180913
  Receipt Date: 20180913
  Transmission Date: 20181010
  Serious: No
  Sender: FDA-Public Use
  Company Number: US-ASTELLAS-2018US008367

PATIENT
  Age: 79 Year
  Sex: Male

DRUGS (1)
  1. XTANDI [Suspect]
     Active Substance: ENZALUTAMIDE
     Indication: PRODUCT USED FOR UNKNOWN INDICATION
     Dosage: UNK UNK, ONCE DAILY
     Route: 048

REACTIONS (7)
  - Dyspnoea exertional [Unknown]
  - Chest discomfort [Unknown]
  - Blood pressure increased [Unknown]
  - Peripheral swelling [Unknown]
  - Swelling [Unknown]
  - Limb injury [Unknown]
  - Headache [Unknown]

NARRATIVE: CASE EVENT DATE: 20180203
